FAERS Safety Report 12784830 (Version 1)
Quarter: 2016Q3

REPORT INFORMATION
  Report Type: Spontaneous
  Country: US (occurrence: US)
  Receive Date: 20160927
  Receipt Date: 20160927
  Transmission Date: 20161109
  Serious: No
  Sender: FDA-Public Use
  Company Number: US-PFIZER INC-2016446390

PATIENT
  Age: 6 Year
  Sex: Male
  Weight: 19 kg

DRUGS (4)
  1. TRAZODONE [Suspect]
     Active Substance: TRAZODONE HYDROCHLORIDE
     Indication: SLEEP DISORDER
     Dosage: 50 MG, 1X/DAY AT BEDTIME
     Route: 048
     Dates: start: 2015
  2. GUANFACINE. [Suspect]
     Active Substance: GUANFACINE
     Dosage: UNK
     Route: 048
  3. QUILLIVANT XR [Suspect]
     Active Substance: METHYLPHENIDATE HYDROCHLORIDE
     Dosage: 6 ML, 2X/DAY
     Dates: start: 20160919
  4. QUILLIVANT XR [Suspect]
     Active Substance: METHYLPHENIDATE HYDROCHLORIDE
     Indication: ATTENTION DEFICIT/HYPERACTIVITY DISORDER
     Dosage: 6 ML, 1X/DAY IN THE MORNING
     Route: 048
     Dates: start: 2014

REACTIONS (4)
  - Anger [Unknown]
  - Mood swings [Unknown]
  - Irritability [Unknown]
  - Insomnia [Unknown]
